FAERS Safety Report 21036869 (Version 3)
Quarter: 2022Q3

REPORT INFORMATION
  Report Type: Spontaneous
  Country: US (occurrence: US)
  Receive Date: 20220702
  Receipt Date: 20220831
  Transmission Date: 20221027
  Serious: No
  Sender: FDA-Public Use
  Company Number: US-LUPIN PHARMACEUTICALS INC.-2022-09141

PATIENT
  Sex: Male

DRUGS (1)
  1. TESTOSTERONE [Suspect]
     Active Substance: TESTOSTERONE
     Indication: Blood testosterone abnormal
     Dosage: UNK, (30 MG/1.5 ML)
     Route: 061

REACTIONS (2)
  - Blood testosterone decreased [Unknown]
  - Product substitution issue [Unknown]
